FAERS Safety Report 9815703 (Version 1)
Quarter: 2014Q1

REPORT INFORMATION
  Report Type: Spontaneous
  Country: IT (occurrence: None)
  Receive Date: 20140110
  Receipt Date: 20140110
  Transmission Date: 20141002
  Serious: Yes (Other)
  Sender: FDA-Public Use
  Company Number: AUR-APL-2013-10737

PATIENT
  Age: 88 Year
  Sex: Female

DRUGS (7)
  1. MIRTAZAPINE (MIRTAZAPINE) [Suspect]
     Indication: OFF LABEL USE
     Dosage: 0.5 DOSAGE FORMS, TOTAL
     Route: 048
     Dates: start: 20130831, end: 20130831
  2. MIRTAZAPINE (MIRTAZAPINE) [Suspect]
     Indication: INSOMNIA
     Dosage: 0.5 DOSAGE FORMS, TOTAL
     Route: 048
     Dates: start: 20130831, end: 20130831
  3. DELECIT (CHOLINE ALFOSCERATE) [Concomitant]
  4. LANSOX (LANSOPRAZOLE) [Concomitant]
  5. SINVACOR (SIMVASTATIN) [Concomitant]
  6. COUMADIN (COUMARIN) [Concomitant]
  7. CITALOPRAM (CITALOPRAM) [Concomitant]

REACTIONS (1)
  - Sopor [None]
